FAERS Safety Report 7592335-9 (Version None)
Quarter: 2011Q3

REPORT INFORMATION
  Report Type: 
  Country: None (occurrence: None)
  Receive Date: 20110705
  Receipt Date: 20110705
  Transmission Date: 20111222
  Serious: Yes (Life-Threatening, Other)
  Sender: FDA-Public Use
  Company Number: None

PATIENT
  Age: 65 Year
  Sex: Female
  Weight: 61.2356 kg

DRUGS (2)
  1. AVELOX [Suspect]
     Indication: BRONCHITIS
     Dosage: FIVE TABLETS ONE PER DAY PO 1/2 TABLET
     Route: 048
     Dates: start: 20110624, end: 20110624
  2. LEVAQUIN [Suspect]
     Indication: BRONCHITIS
     Dosage: FIVE TABLETS ONE PER DAY PO 1 TABLET
     Route: 048
     Dates: start: 20110622, end: 20110622

REACTIONS (8)
  - DIARRHOEA [None]
  - MENTAL IMPAIRMENT [None]
  - LOSS OF CONSCIOUSNESS [None]
  - ASTHENIA [None]
  - ANAPHYLACTIC REACTION [None]
  - VISION BLURRED [None]
  - MYALGIA [None]
  - NEURALGIA [None]
